FAERS Safety Report 16877819 (Version 1)
Quarter: 2019Q4

REPORT INFORMATION
  Report Type: Spontaneous
  Country: IE (occurrence: IE)
  Receive Date: 20191002
  Receipt Date: 20191002
  Transmission Date: 20200122
  Serious: Yes (Other)
  Sender: FDA-Public Use
  Company Number: IE-ENDO PHARMACEUTICALS INC-2019-108380

PATIENT
  Age: 35 Year
  Sex: Male
  Weight: 54.3 kg

DRUGS (1)
  1. AVEED [Suspect]
     Active Substance: TESTOSTERONE UNDECANOATE
     Indication: KLINEFELTER^S SYNDROME
     Dosage: UNK UNKNOWN, UNKNOWN
     Route: 030

REACTIONS (1)
  - Pulmonary microemboli [Unknown]
